FAERS Safety Report 16756419 (Version 1)
Quarter: 2019Q3

REPORT INFORMATION
  Report Type: Report from Study
  Country: US (occurrence: US)
  Receive Date: 20190829
  Receipt Date: 20190829
  Transmission Date: 20191005
  Serious: Yes (Hospitalization, Other)
  Sender: FDA-Public Use
  Company Number: US-MYLANLABS-2019M1080504

PATIENT
  Age: 68 Year
  Sex: Male

DRUGS (1)
  1. DIGOXIN. [Suspect]
     Active Substance: DIGOXIN
     Indication: CARDIAC AMYLOIDOSIS
     Route: 065

REACTIONS (3)
  - Cardiac failure congestive [Unknown]
  - Cardiogenic shock [Unknown]
  - Ventricular arrhythmia [Unknown]
